FAERS Safety Report 7939851-5 (Version None)
Quarter: 2011Q4

REPORT INFORMATION
  Report Type: 
  Country: None (occurrence: None)
  Receive Date: 20111125
  Receipt Date: 20111114
  Transmission Date: 20120403
  Serious: Yes (Death)
  Sender: FDA-Public Use
  Company Number: JP-BRISTOL-MYERS SQUIBB COMPANY-16248064

PATIENT
  Age: 64 Year

DRUGS (1)
  1. CYCLOPHOSPHAMIDE [Suspect]
     Indication: WEGENER'S GRANULOMATOSIS

REACTIONS (1)
  - REFRACTORY ANAEMIA WITH AN EXCESS OF BLASTS [None]
